FAERS Safety Report 5341919-7 (Version None)
Quarter: 2007Q2

REPORT INFORMATION
  Report Type: 
  Country: None (occurrence: None)
  Receive Date: 20070601
  Receipt Date: 20070518
  Transmission Date: 20071010
  Serious: Yes (Hospitalization)
  Sender: FDA-Public Use
  Company Number: JP-ROCHE-498975

PATIENT
  Age: 79 Year
  Sex: Male
  Weight: 47 kg

DRUGS (10)
  1. TAMIFLU [Suspect]
     Route: 048
     Dates: start: 20070319
  2. ISCOTIN [Concomitant]
     Route: 065
  3. RIFADIN [Concomitant]
     Route: 048
  4. ETHAMBUTOL HYDROCHLORIDE [Concomitant]
     Route: 048
  5. PYRIDOXAL PHOSPHATE [Concomitant]
     Route: 048
  6. ASPIRIN [Concomitant]
     Route: 048
  7. TAKEPRON [Concomitant]
  8. LANIRAPID [Concomitant]
     Route: 048
  9. ACARDI [Concomitant]
     Route: 048
  10. SENNOSIDE [Concomitant]
     Route: 048

REACTIONS (1)
  - FALL [None]
